FAERS Safety Report 21728975 (Version 1)
Quarter: 2022Q4

REPORT INFORMATION
  Report Type: Spontaneous
  Country: US (occurrence: US)
  Receive Date: 20221214
  Receipt Date: 20221214
  Transmission Date: 20230113
  Serious: No
  Sender: FDA-Public Use
  Company Number: US-ALLERGAN-2222563US

PATIENT

DRUGS (2)
  1. DALVANCE [Suspect]
     Active Substance: DALBAVANCIN
     Indication: Staphylococcal infection
     Dosage: 1500 MG, SINGLE
  2. DALVANCE [Suspect]
     Active Substance: DALBAVANCIN
     Indication: Enterococcal infection

REACTIONS (1)
  - Off label use [Unknown]
